FAERS Safety Report 15483721 (Version 1)
Quarter: 2018Q4

REPORT INFORMATION
  Report Type: Spontaneous
  Country: US (occurrence: US)
  Receive Date: 20181010
  Receipt Date: 20181010
  Transmission Date: 20190205
  Serious: No
  Sender: FDA-Public Use
  Company Number: US-PFIZER INC-2018408207

PATIENT
  Age: 63 Year
  Sex: Male
  Weight: 109 kg

DRUGS (15)
  1. LASIX [Concomitant]
     Active Substance: FUROSEMIDE
     Indication: OEDEMA PERIPHERAL
     Dosage: 40 MG, AS NEEDED (BUT HE TAKES IT ABOUT EVERYDAY)
  2. OLANZAPINE. [Concomitant]
     Active Substance: OLANZAPINE
     Indication: MANIA
  3. ROSUVASTATIN CALCIUM. [Concomitant]
     Active Substance: ROSUVASTATIN CALCIUM
     Indication: BLOOD CHOLESTEROL ABNORMAL
     Dosage: 20 MG, 1X/DAY (ONE AT BED TIME)
  4. HYDROCODONE [Concomitant]
     Active Substance: HYDROCODONE
     Indication: PAIN
     Dosage: UNK, AS NEEDED (AT 7.5, UNITS UNKNOWN)
  5. ELIQUIS [Concomitant]
     Active Substance: APIXABAN
     Indication: OEDEMA PERIPHERAL
     Dosage: 5 MG, 2X/DAY
  6. LAMOTRIGINE. [Concomitant]
     Active Substance: LAMOTRIGINE
     Indication: BIPOLAR DISORDER
     Dosage: 200 MG, 2X/DAY (ONE IN THE MORNING AND ONE AT NIGHT)
  7. GABAPENTIN. [Concomitant]
     Active Substance: GABAPENTIN
     Indication: MANIA
  8. LEVOTHYROXINE. [Concomitant]
     Active Substance: LEVOTHYROXINE
     Indication: THYROID DISORDER
     Dosage: 50 UG, 1X/DAY (ONE TABLET IN THE MORNING)
  9. VITAMIN D [Concomitant]
     Active Substance: CHOLECALCIFEROL
     Indication: VITAMIN D DEFICIENCY
     Dosage: UNK
  10. MULTAQ [Concomitant]
     Active Substance: DRONEDARONE
     Indication: ATRIAL FIBRILLATION
     Dosage: 400 MG, 2X/DAY (ONE IN THE MORNING AND ONE AT NIGHT)
  11. GABAPENTIN. [Concomitant]
     Active Substance: GABAPENTIN
     Indication: RESTLESS LEGS SYNDROME
     Dosage: 900 MG, 2X/DAY (300 IN THE MORNING AND 600 AT NIGHT)
  12. LYRICA [Suspect]
     Active Substance: PREGABALIN
     Indication: ESSENTIAL TREMOR
     Dosage: 75 MG, 2X/DAY (ONE IN THE MORNING AND ONE IN NIGHT)
  13. DIAZEPAM. [Concomitant]
     Active Substance: DIAZEPAM
     Indication: INSOMNIA
     Dosage: 1 DF, 1X/DAY (ONE AT BED TIME)
  14. MELATONIN [Concomitant]
     Active Substance: MELATONIN
     Indication: SLEEP DISORDER
     Dosage: 10 MG, 1X/DAY (AT NIGHT)
  15. OLANZAPINE. [Concomitant]
     Active Substance: OLANZAPINE
     Indication: BIPOLAR DISORDER
     Dosage: 5 MG, 3X/DAY (ONE ABOUT IN MID DAY AND TWO AT BED TIME)

REACTIONS (1)
  - Product use in unapproved indication [Unknown]
